FAERS Safety Report 25416177 (Version 1)
Quarter: 2025Q2

REPORT INFORMATION
  Report Type: Spontaneous
  Country: US (occurrence: US)
  Receive Date: 20250610
  Receipt Date: 20250610
  Transmission Date: 20250716
  Serious: Yes (Other)
  Sender: RANBAXY
  Company Number: US-SUN PHARMACEUTICAL INDUSTRIES INC-2025R1-511525

PATIENT
  Age: 72 Year
  Sex: Female

DRUGS (7)
  1. GABAPENTIN [Suspect]
     Active Substance: GABAPENTIN
     Indication: Vulvovaginal pain
     Route: 048
  2. LORAZEPAM [Suspect]
     Active Substance: LORAZEPAM
     Indication: Vulvovaginal pain
     Route: 048
  3. PREDNISONE [Suspect]
     Active Substance: PREDNISONE
     Indication: Vulvovaginal pain
     Route: 048
  4. CANNABIDIOL [Suspect]
     Active Substance: CANNABIDIOL
     Indication: Vulvovaginal pain
     Route: 065
  5. ESTROGENS [Suspect]
     Active Substance: ESTROGENS
     Indication: Vulvovaginal pain
     Route: 061
  6. ESTROGENS [Suspect]
     Active Substance: ESTROGENS
     Indication: Vulvovaginal pain
     Route: 067
  7. LIDOCAINE [Suspect]
     Active Substance: LIDOCAINE

REACTIONS (1)
  - Treatment failure [Unknown]
